FAERS Safety Report 4832767-2 (Version None)
Quarter: 2005Q4

REPORT INFORMATION
  Report Type: 
  Country: None (occurrence: None)
  Receive Date: 20051121
  Receipt Date: 20050727
  Transmission Date: 20060501
  Serious: Yes (Other)
  Sender: FDA-Public Use
  Company Number: PHEH2005US08330

PATIENT
  Age: 36 Year
  Sex: Female
  Weight: 61.678 kg

DRUGS (3)
  1. ZELNORM [Suspect]
     Indication: IRRITABLE BOWEL SYNDROME
     Dosage: 6 MG, ONCE/SINGLE
     Route: 048
     Dates: start: 20050710, end: 20050710
  2. DARVOCET-N 100 [Concomitant]
     Indication: PELVIC PAIN
     Dosage: ONE TO TWO TABS Q 4 TO 6 HOURS
     Route: 048
     Dates: start: 20050405, end: 20050716
  3. OVCON-35 [Concomitant]
     Dosage: 35 UG, UNK
     Dates: start: 20050620, end: 20050827

REACTIONS (7)
  - ABDOMINAL DISCOMFORT [None]
  - ABDOMINAL PAIN [None]
  - BLOOD PRESSURE INCREASED [None]
  - DIARRHOEA [None]
  - FEELING JITTERY [None]
  - FEELING OF BODY TEMPERATURE CHANGE [None]
  - NAUSEA [None]
